FAERS Safety Report 24399719 (Version 3)
Quarter: 2025Q1

REPORT INFORMATION
  Report Type: Spontaneous
  Country: US (occurrence: US)
  Receive Date: 20241005
  Receipt Date: 20250130
  Transmission Date: 20250408
  Serious: Yes (Other)
  Sender: SANOFI AVENTIS
  Company Number: US-SA-2024SA283876

PATIENT
  Age: 60 Year
  Sex: Female
  Weight: 90.91 kg

DRUGS (2)
  1. DUPIXENT [Suspect]
     Active Substance: DUPILUMAB
     Indication: Dermatitis atopic
     Dosage: 300 MG, QOW
     Route: 058
     Dates: start: 2023
  2. DUPIXENT [Suspect]
     Active Substance: DUPILUMAB
     Indication: Eczema
     Dosage: 300 MG, QOW
     Route: 058
     Dates: start: 202407, end: 202412

REACTIONS (5)
  - Systemic lupus erythematosus [Unknown]
  - Sleep disorder due to a general medical condition [Recovering/Resolving]
  - Eczema [Not Recovered/Not Resolved]
  - Dry skin [Recovering/Resolving]
  - Therapeutic response decreased [Not Recovered/Not Resolved]

NARRATIVE: CASE EVENT DATE: 20240101
